FAERS Safety Report 5941198-3 (Version None)
Quarter: 2008Q4

REPORT INFORMATION
  Report Type: 
  Country: None (occurrence: None)
  Receive Date: 20081104
  Receipt Date: 20081024
  Transmission Date: 20090506
  Serious: Yes (Other)
  Sender: FDA-Public Use
  Company Number: US-PFIZER INC-2008089825

PATIENT
  Sex: Female

DRUGS (1)
  1. ZOLOFT [Suspect]

REACTIONS (1)
  - DEPENDENCE [None]
